FAERS Safety Report 7038283-4 (Version None)
Quarter: 2010Q4

REPORT INFORMATION
  Report Type: 
  Country: None (occurrence: None)
  Receive Date: 20101011
  Receipt Date: 20091019
  Transmission Date: 20110411
  Serious: No
  Sender: FDA-Public Use
  Company Number: US-PFIZER INC-2009286490

PATIENT
  Sex: Female
  Weight: 57.596 kg

DRUGS (4)
  1. NEURONTIN [Suspect]
     Indication: TREMOR
     Dosage: UNK
     Dates: start: 20090601
  2. ATENOLOL [Concomitant]
     Dosage: 1 MG, 1X/DAY
     Route: 048
  3. DOXAZOSIN MESILATE [Concomitant]
     Dosage: 25 MG, 1X/DAY
     Route: 048
  4. LIPITOR [Concomitant]
     Dosage: 80 MG, 1X/DAY
     Route: 048

REACTIONS (1)
  - BLOOD PRESSURE DIASTOLIC DECREASED [None]
